FAERS Safety Report 10067151 (Version 1)
Quarter: 2014Q2

REPORT INFORMATION
  Report Type: Spontaneous
  Country: US (occurrence: None)
  Receive Date: 20140407
  Receipt Date: 20140407
  Transmission Date: 20141212
  Serious: Yes (Hospitalization, Other)
  Sender: FDA-Public Use
  Company Number: UTC-046584

PATIENT
  Age: 58 Year
  Sex: Female

DRUGS (1)
  1. REMODULIN (2.5 MILLIGRAM/MILLILITERS, INJECTION FOR INFUSION  (TREPROSTINIL SODIUM) [Suspect]
     Dosage: 0.013 UG/KG 1 IN 1 MIN
     Route: 058
     Dates: start: 20131205

REACTIONS (3)
  - Cellulitis [None]
  - Injection site pain [None]
  - Local swelling [None]
